FAERS Safety Report 4952868-8 (Version None)
Quarter: 2006Q1

REPORT INFORMATION
  Report Type: 
  Country: None (occurrence: None)
  Receive Date: 20060321
  Receipt Date: 20060308
  Transmission Date: 20060701
  Serious: Yes (Other)
  Sender: FDA-Public Use
  Company Number: FABR-11385

PATIENT
  Age: 63 Year
  Sex: Male
  Weight: 70 kg

DRUGS (4)
  1. FABRAZYME [Suspect]
     Indication: FABRY'S DISEASE
     Dosage: 70 MG Q2WKS IV
     Route: 042
     Dates: start: 20040922
  2. DICLOFENAC SODIUM [Concomitant]
  3. BETAMETHASONE [Concomitant]
  4. D-CHLORPHENIRAMINE MALEATE [Concomitant]

REACTIONS (2)
  - ATRIAL FIBRILLATION [None]
  - CHEST DISCOMFORT [None]
